FAERS Safety Report 16576902 (Version 1)
Quarter: 2019Q3

REPORT INFORMATION
  Report Type: Spontaneous
  Country: US (occurrence: US)
  Receive Date: 20190716
  Receipt Date: 20190716
  Transmission Date: 20191004
  Serious: No
  Sender: FDA-Public Use
  Company Number: US-009507513-1906USA007269

PATIENT
  Age: 69 Year
  Sex: Male
  Weight: 86 kg

DRUGS (5)
  1. ROCURONIUM BROMIDE. [Concomitant]
     Active Substance: ROCURONIUM BROMIDE
     Dosage: 100 MILLIGRAM
  2. FENTANYL. [Concomitant]
     Active Substance: FENTANYL
     Dosage: 150 MICROGRAM
  3. PROPOFOL. [Concomitant]
     Active Substance: PROPOFOL
     Dosage: 140 MILLIGRAM
  4. BRIDION [Suspect]
     Active Substance: SUGAMMADEX
     Indication: NEUROMUSCULAR BLOCKADE REVERSAL
     Dosage: 4 MG/KG, 3 MINUTES BEFORE EMERGENCE FROM GENERAL ANESTHESIA
     Route: 058
  5. SUCCINYLCHOLINE CHLORIDE. [Concomitant]
     Active Substance: SUCCINYLCHOLINE CHLORIDE

REACTIONS (1)
  - Off label use [Unknown]
